FAERS Safety Report 25812017 (Version 1)
Quarter: 2025Q3

REPORT INFORMATION
  Report Type: Spontaneous
  Country: US (occurrence: None)
  Receive Date: 20250916
  Receipt Date: 20250916
  Transmission Date: 20251021
  Serious: Yes (Death)
  Sender: FDA-CTU
  Company Number: None

PATIENT
  Age: 67 Year
  Sex: Male

DRUGS (1)
  1. LENALIDOMIDE [Suspect]
     Active Substance: LENALIDOMIDE
     Indication: Plasma cell myeloma
     Dates: start: 20240301, end: 20250729

REACTIONS (4)
  - Cardiac arrest [None]
  - Acute respiratory failure [None]
  - Respiratory failure [None]
  - Radiation injury [None]

NARRATIVE: CASE EVENT DATE: 20250729
